FAERS Safety Report 21469740 (Version 1)
Quarter: 2022Q4

REPORT INFORMATION
  Report Type: Report from Study
  Country: PL (occurrence: PL)
  Receive Date: 20221018
  Receipt Date: 20221018
  Transmission Date: 20230113
  Serious: Yes (Life-Threatening, Hospitalization)
  Sender: FDA-Public Use
  Company Number: PL-CELGENE-POL-20220207292

PATIENT
  Sex: Male
  Weight: 74 kg

DRUGS (3)
  1. ASCORBIC ACID\RUTIN [Concomitant]
     Active Substance: ASCORBIC ACID\RUTIN
     Indication: General physical health deterioration
     Dosage: 1 DOSAGE FORM = 1 TABLET
     Route: 048
     Dates: start: 20141116
  2. THIOCOLCHICOSIDUM [Concomitant]
     Indication: Muscle spasticity
     Route: 048
     Dates: start: 20201103
  3. TIZANOR [Concomitant]
     Indication: Muscle spasticity
     Route: 048
     Dates: start: 20181130

REACTIONS (1)
  - COVID-19 [Recovered/Resolved]

NARRATIVE: CASE EVENT DATE: 20211229
